FAERS Safety Report 4663221-9 (Version None)
Quarter: 2005Q2

REPORT INFORMATION
  Report Type: 
  Country: None (occurrence: None)
  Receive Date: 20050513
  Receipt Date: 20050303
  Transmission Date: 20051028
  Serious: Yes (Hospitalization)
  Sender: FDA-Public Use
  Company Number: 2005BI005223

PATIENT
  Sex: Male

DRUGS (2)
  1. AVONEX [Suspect]
     Indication: MULTIPLE SCLEROSIS
     Dosage: 30 UG;QW;IM
     Route: 030
     Dates: start: 20000101
  2. RITUXAN [Concomitant]

REACTIONS (4)
  - CONDITION AGGRAVATED [None]
  - DISCOMFORT [None]
  - MUSCLE SPASTICITY [None]
  - PYREXIA [None]
